FAERS Safety Report 20171094 (Version 1)
Quarter: 2021Q4

REPORT INFORMATION
  Report Type: Report from Study
  Country: DE (occurrence: DE)
  Receive Date: 20211210
  Receipt Date: 20211210
  Transmission Date: 20220303
  Serious: Yes (Hospitalization, Other)
  Sender: FDA-Public Use
  Company Number: DE-UCBSA-2021033322

PATIENT
  Sex: Female

DRUGS (7)
  1. CERTOLIZUMAB PEGOL [Suspect]
     Active Substance: CERTOLIZUMAB PEGOL
     Indication: Axial spondyloarthritis
     Dosage: 200 MILLIGRAM, EV 2 WEEKS(QOW)
     Dates: start: 20190709, end: 20201010
  2. TOCILIZUMAB [Concomitant]
     Active Substance: TOCILIZUMAB
     Indication: Product used for unknown indication
     Dosage: 162 MILLIGRAM, WEEKLY (QW)
     Route: 058
     Dates: start: 20201027
  3. ETORICOXIB [Concomitant]
     Active Substance: ETORICOXIB
     Indication: Product used for unknown indication
     Dosage: 90 MILLIGRAM, WEEKLY (QW)
     Dates: start: 20190329, end: 20190911
  4. ETORICOXIB [Concomitant]
     Active Substance: ETORICOXIB
     Dosage: 90 MILLIGRAM
     Dates: start: 20191217, end: 20201015
  5. METHOTREXATE SODIUM [Concomitant]
     Active Substance: METHOTREXATE SODIUM
     Indication: Product used for unknown indication
     Dosage: 10 MILLIGRAM, WEEKLY (QW)
     Route: 058
     Dates: start: 20201019
  6. ERELZI [Concomitant]
     Active Substance: ETANERCEPT-SZZS
     Indication: Product used for unknown indication
     Dosage: 50 MILLIGRAM
     Dates: start: 20190411, end: 20190621
  7. ACEMETACIN [Concomitant]
     Active Substance: ACEMETACIN
     Indication: Product used for unknown indication
     Dosage: UNK
     Dates: start: 20190911, end: 20191215

REACTIONS (14)
  - Pulmonary pneumatocele [Not Recovered/Not Resolved]
  - Aortic aneurysm [Unknown]
  - Arterial stenosis [Unknown]
  - Aortitis [Unknown]
  - Vasculitis [Unknown]
  - Arteriosclerosis coronary artery [Unknown]
  - Diverticulum [Unknown]
  - Headache [Unknown]
  - Hepatic cyst [Unknown]
  - Intracranial aneurysm [Unknown]
  - Weight decreased [Unknown]
  - Oral herpes [Unknown]
  - Heart valve incompetence [Unknown]
  - Spinal pain [Unknown]

NARRATIVE: CASE EVENT DATE: 20200615
